FAERS Safety Report 20132636 (Version 31)
Quarter: 2023Q1

REPORT INFORMATION
  Report Type: Report from Study
  Country: US (occurrence: US)
  Receive Date: 20211130
  Receipt Date: 20230321
  Transmission Date: 20230418
  Serious: No
  Sender: FDA-Public Use
  Company Number: US-NOVARTISTESTPH-NVSC2021US272437

PATIENT
  Age: 46 Year
  Sex: Female
  Weight: 57.143 kg

DRUGS (19)
  1. TREPROSTINIL [Suspect]
     Active Substance: TREPROSTINIL
     Indication: Pulmonary arterial hypertension
     Dosage: CONT (72 NG/KG/MIN)
     Route: 042
     Dates: start: 20211117
  2. TREPROSTINIL [Suspect]
     Active Substance: TREPROSTINIL
     Dosage: CONT (76 NG/KG/MIN)
     Route: 042
     Dates: start: 20211220
  3. TREPROSTINIL [Suspect]
     Active Substance: TREPROSTINIL
     Dosage: CONT (84 NG/KG/MIN)
     Route: 042
  4. TREPROSTINIL [Suspect]
     Active Substance: TREPROSTINIL
     Dosage: CONT (89 NG/KG/MIN)
     Route: 042
     Dates: start: 20220214
  5. TREPROSTINIL [Suspect]
     Active Substance: TREPROSTINIL
     Dosage: CONT (98 NG/KG/MIN)
     Route: 042
     Dates: start: 20220306
  6. TREPROSTINIL [Suspect]
     Active Substance: TREPROSTINIL
     Dosage: CONT (100 NG/KG/MIN)
     Route: 042
  7. TREPROSTINIL [Suspect]
     Active Substance: TREPROSTINIL
     Dosage: CONT (102 NG/KG/MIN), CONCENTRATION: 5MG/ML
     Route: 042
  8. TREPROSTINIL [Suspect]
     Active Substance: TREPROSTINIL
     Dosage: 106 NG/KG/MIN, CONT
     Route: 065
     Dates: start: 20220426
  9. TREPROSTINIL [Suspect]
     Active Substance: TREPROSTINIL
     Dosage: UNK, CONT (109 NG/KG/MIN)
     Route: 042
     Dates: start: 20220523
  10. TREPROSTINIL [Suspect]
     Active Substance: TREPROSTINIL
     Dosage: 114 NG/KG/MIN, CONT
     Route: 042
  11. TREPROSTINIL [Suspect]
     Active Substance: TREPROSTINIL
     Dosage: (122 NG/KG/MIN), CONT
     Route: 042
  12. TREPROSTINIL [Suspect]
     Active Substance: TREPROSTINIL
     Dosage: 125 NG/KG/MIN, CONT
     Route: 042
  13. TREPROSTINIL [Suspect]
     Active Substance: TREPROSTINIL
     Dosage: UNK, (INCREASED DOSE)
     Route: 042
     Dates: start: 20220920
  14. TREPROSTINIL [Suspect]
     Active Substance: TREPROSTINIL
     Dosage: 137 NG/KG/MIN, CONT
     Route: 042
     Dates: start: 20221127
  15. TREPROSTINIL [Suspect]
     Active Substance: TREPROSTINIL
     Dosage: 140 NG/KG/MIN, CONT
     Route: 042
     Dates: start: 20230102
  16. TREPROSTINIL [Suspect]
     Active Substance: TREPROSTINIL
     Dosage: UNK, CONT, 137 NG/KG/MIN
     Route: 065
  17. TREPROSTINIL [Suspect]
     Active Substance: TREPROSTINIL
     Dosage: 140 NG/KG/MIN, CONT
     Route: 042
  18. TADALAFIL [Concomitant]
     Active Substance: TADALAFIL
     Indication: Product used for unknown indication
     Dosage: UNK
     Route: 065
  19. OPSUMIT [Concomitant]
     Active Substance: MACITENTAN
     Indication: Product used for unknown indication
     Dosage: UNK
     Route: 065

REACTIONS (37)
  - Fatigue [Recovered/Resolved]
  - Headache [Recovered/Resolved]
  - Fatigue [Recovered/Resolved]
  - Fatigue [Recovering/Resolving]
  - Menstrual disorder [Unknown]
  - Flushing [Recovered/Resolved]
  - Flushing [Recovered/Resolved]
  - Heart rate increased [Unknown]
  - Sinusitis [Recovered/Resolved]
  - Paranasal sinus discomfort [Unknown]
  - Sinus pain [Unknown]
  - Ear pain [Unknown]
  - Sinusitis [Unknown]
  - Nasal congestion [Unknown]
  - Ear discomfort [Unknown]
  - Headache [Recovered/Resolved]
  - Headache [Recovering/Resolving]
  - Weight decreased [Unknown]
  - Dyspnoea [Recovering/Resolving]
  - Catheter site rash [Recovering/Resolving]
  - Dry skin [Unknown]
  - Skin irritation [Unknown]
  - Myalgia [Unknown]
  - Muscle spasms [Recovered/Resolved]
  - Muscle spasms [Recovered/Resolved]
  - Nausea [Recovered/Resolved]
  - Hypotension [Unknown]
  - Muscle spasms [Unknown]
  - Diarrhoea [Recovered/Resolved]
  - Diarrhoea [Recovered/Resolved]
  - Dizziness [Unknown]
  - Nausea [Recovered/Resolved]
  - Diarrhoea [Recovered/Resolved]
  - Rash [Unknown]
  - Nausea [Unknown]
  - Abdominal pain upper [Unknown]
  - Diarrhoea [Unknown]

NARRATIVE: CASE EVENT DATE: 20211207
